FAERS Safety Report 18424268 (Version 2)
Quarter: 2020Q4

REPORT INFORMATION
  Report Type: Spontaneous
  Country: US (occurrence: US)
  Receive Date: 20201025
  Receipt Date: 20201102
  Transmission Date: 20210114
  Serious: Yes (Other)
  Sender: FDA-Public Use
  Company Number: US-ROCHE-2701283

PATIENT
  Age: 49 Year
  Sex: Female
  Weight: 99.3 kg

DRUGS (8)
  1. OCREVUS [Suspect]
     Active Substance: OCRELIZUMAB
     Indication: RELAPSING MULTIPLE SCLEROSIS
     Route: 042
     Dates: start: 20190501
  2. TEGRETOL [Concomitant]
     Active Substance: CARBAMAZEPINE
  3. MELATONIN [Concomitant]
     Active Substance: MELATONIN
  4. CLONAZEPAM. [Concomitant]
     Active Substance: CLONAZEPAM
  5. DETROL [Concomitant]
     Active Substance: TOLTERODINE TARTRATE
  6. LIPITOR [Concomitant]
     Active Substance: ATORVASTATIN CALCIUM
  7. TRAZODONE [Concomitant]
     Active Substance: TRAZODONE HYDROCHLORIDE
  8. PAXIL [Concomitant]
     Active Substance: PAROXETINE HYDROCHLORIDE

REACTIONS (1)
  - Intraductal proliferative breast lesion [Not Recovered/Not Resolved]

NARRATIVE: CASE EVENT DATE: 202010
